FAERS Safety Report 6268818-0 (Version None)
Quarter: 2009Q3

REPORT INFORMATION
  Report Type: 
  Country: None (occurrence: None)
  Receive Date: 20090710
  Receipt Date: 20090710
  Transmission Date: 20100115
  Serious: Yes (Other)
  Sender: FDA-Public Use
  Company Number: None

PATIENT
  Age: 50 Year
  Sex: Female
  Weight: 62.5964 kg

DRUGS (1)
  1. SIMVASTATIN [Suspect]
     Dosage: ONE PER DAY
     Dates: start: 20090707, end: 20090707

REACTIONS (3)
  - ASTHENIA [None]
  - HEADACHE [None]
  - NECK PAIN [None]
